FAERS Safety Report 15920564 (Version 1)
Quarter: 2019Q1

REPORT INFORMATION
  Report Type: Spontaneous
  Country: FR (occurrence: FR)
  Receive Date: 20190205
  Receipt Date: 20190205
  Transmission Date: 20190417
  Serious: Yes (Death, Life-Threatening)
  Sender: FDA-Public Use
  Company Number: FR-PFIZER INC-2018216152

PATIENT
  Age: 63 Year
  Sex: Female

DRUGS (20)
  1. PIPERACILLIN/TAZOBACTAM [Suspect]
     Active Substance: PIPERACILLIN SODIUM\TAZOBACTAM SODIUM
     Indication: PYREXIA
     Dosage: UNK
     Dates: start: 20020411
  2. MITOXANTRONE [Concomitant]
     Active Substance: MITOXANTRONE HYDROCHLORIDE
     Indication: ACUTE MYELOMONOCYTIC LEUKAEMIA
     Dosage: UNK (INTENSIVE CHEMOTHERAPY)
     Dates: start: 20020411
  3. ETOPOSIDE. [Concomitant]
     Active Substance: ETOPOSIDE
     Dosage: UNK (CONSOLIDATION CHEMOTHERAPY)
     Dates: start: 20020521
  4. PIPERACILLIN/TAZOBACTAM [Suspect]
     Active Substance: PIPERACILLIN SODIUM\TAZOBACTAM SODIUM
     Indication: EVIDENCE BASED TREATMENT
  5. TOBRAMYCIN. [Suspect]
     Active Substance: TOBRAMYCIN
     Indication: PANCYTOPENIA
  6. VANCOMYCIN [Suspect]
     Active Substance: VANCOMYCIN
     Indication: PYREXIA
  7. OFLOXACIN. [Suspect]
     Active Substance: OFLOXACIN
     Indication: URINARY TRACT INFECTION
     Dosage: UNK
     Dates: start: 20020521
  8. IDARUBICIN [Concomitant]
     Active Substance: IDARUBICIN
     Indication: ACUTE MYELOMONOCYTIC LEUKAEMIA
     Dosage: UNK
     Dates: start: 20020521
  9. TOBRAMYCIN. [Suspect]
     Active Substance: TOBRAMYCIN
     Indication: HAEMATOMA
     Dosage: UNK
     Dates: start: 20020411
  10. ARA-C [Concomitant]
     Active Substance: CYTARABINE
     Indication: ACUTE MYELOMONOCYTIC LEUKAEMIA
     Dosage: UNK (INTENSIVE CHEMOTHERAPY)
     Dates: start: 20020411
  11. PIPERACILLIN/TAZOBACTAM [Suspect]
     Active Substance: PIPERACILLIN SODIUM\TAZOBACTAM SODIUM
     Indication: PANCYTOPENIA
  12. TOBRAMYCIN. [Suspect]
     Active Substance: TOBRAMYCIN
     Indication: PYREXIA
     Dosage: UNK
     Dates: start: 200206
  13. VANCOMYCIN [Suspect]
     Active Substance: VANCOMYCIN
     Indication: HAEMATOMA
     Dosage: UNK
     Dates: start: 20020609
  14. VANCOMYCIN [Suspect]
     Active Substance: VANCOMYCIN
     Indication: PNEUMONIA
     Dosage: UNK
     Dates: start: 20020411
  15. ARA-C [Concomitant]
     Active Substance: CYTARABINE
     Dosage: UNK (CONSOLIDATION CHEMOTHERAPY)
     Dates: start: 20020521
  16. ETOPOSIDE. [Concomitant]
     Active Substance: ETOPOSIDE
     Indication: ACUTE MYELOMONOCYTIC LEUKAEMIA
     Dosage: UNK (INTENSIVE CHEMOTHERAPY)
     Dates: start: 20020411
  17. MITOXANTRONE [Concomitant]
     Active Substance: MITOXANTRONE HYDROCHLORIDE
     Dosage: UNK (CONSOLIDATION CHEMOTHERAPY)
     Dates: start: 20020521
  18. PIPERACILLIN/TAZOBACTAM [Suspect]
     Active Substance: PIPERACILLIN SODIUM\TAZOBACTAM SODIUM
     Indication: HAEMATOMA
     Dosage: UNK
     Dates: start: 200206
  19. TOBRAMYCIN. [Suspect]
     Active Substance: TOBRAMYCIN
     Indication: EVIDENCE BASED TREATMENT
  20. OFLOXACIN. [Suspect]
     Active Substance: OFLOXACIN
     Indication: ESCHERICHIA BACTERAEMIA

REACTIONS (11)
  - Stenotrophomonas infection [Fatal]
  - Drug ineffective [Fatal]
  - Small intestinal haemorrhage [None]
  - Urinary tract infection [None]
  - Escherichia infection [None]
  - Haemorrhagic pneumonia [None]
  - Condition aggravated [None]
  - Diffuse alveolar damage [None]
  - Pancytopenia [None]
  - Shock haemorrhagic [None]
  - Large intestinal haemorrhage [None]
